FAERS Safety Report 19290401 (Version 3)
Quarter: 2021Q3

REPORT INFORMATION
  Report Type: Spontaneous
  Country: FR (occurrence: FR)
  Receive Date: 20210522
  Receipt Date: 20210819
  Transmission Date: 20211014
  Serious: Yes (Hospitalization, Other)
  Sender: FDA-Public Use
  Company Number: FR-ALXN-A202105762

PATIENT
  Age: 39 Year
  Sex: Female

DRUGS (11)
  1. SOLIRIS [Suspect]
     Active Substance: ECULIZUMAB
     Indication: OFF LABEL USE
  2. RITUXIMAB. [Suspect]
     Active Substance: RITUXIMAB
     Indication: OFF LABEL USE
  3. FERRIC HYDROXIDE [Suspect]
     Active Substance: FERRIC HYDROXIDE
     Indication: DELAYED HAEMOLYTIC TRANSFUSION REACTION
     Dosage: 100 MG, UNK
     Route: 065
  4. RITUXIMAB. [Suspect]
     Active Substance: RITUXIMAB
     Indication: DELAYED HAEMOLYTIC TRANSFUSION REACTION
     Dosage: 375 MG/M2, ON DAYS 1, 4, 8, AND 12
     Route: 041
  5. FOLIC ACID. [Suspect]
     Active Substance: FOLIC ACID
     Indication: DELAYED HAEMOLYTIC TRANSFUSION REACTION
     Dosage: 30 MG, QD
     Route: 065
  6. METHYLPREDNISOLONE. [Suspect]
     Active Substance: METHYLPREDNISOLONE
     Indication: DELAYED HAEMOLYTIC TRANSFUSION REACTION
     Dosage: 250 MG, QD
     Route: 065
  7. IMMUNOGLOBULIN                     /00025201/ [Concomitant]
     Active Substance: HUMAN IMMUNOGLOBULIN G
     Indication: DELAYED HAEMOLYTIC TRANSFUSION REACTION
     Dosage: 2 G/KG/DAY FOR 5 DAYS
     Route: 042
  8. METHOXY POLYETHYLENE GLYCOL?EPOETIN BETA. [Suspect]
     Active Substance: METHOXY POLYETHYLENE GLYCOL-EPOETIN BETA
     Indication: DELAYED HAEMOLYTIC TRANSFUSION REACTION
     Dosage: 360 MG, FOR 4 DAYS
     Route: 065
  9. SOLIRIS [Suspect]
     Active Substance: ECULIZUMAB
     Indication: DELAYED HAEMOLYTIC TRANSFUSION REACTION
     Dosage: 900 MG, QW
     Route: 042
  10. DARBEPOETIN ALFA [Suspect]
     Active Substance: DARBEPOETIN ALFA
     Indication: DELAYED HAEMOLYTIC TRANSFUSION REACTION
     Dosage: 300 ?G, QW
     Route: 065
  11. EPOETIN ALFA [Suspect]
     Active Substance: ERYTHROPOIETIN
     Indication: DELAYED HAEMOLYTIC TRANSFUSION REACTION
     Dosage: 50 UI/KG PER 0.33 WEEK
     Route: 065

REACTIONS (5)
  - Premature delivery [Unknown]
  - Maternal exposure during pregnancy [Unknown]
  - Pyelonephritis [Recovered/Resolved]
  - Enterobacter infection [Recovered/Resolved]
  - Off label use [Unknown]
